FAERS Safety Report 8739878 (Version 2)
Quarter: 2013Q4

REPORT INFORMATION
  Report Type: Spontaneous
  Country: US (occurrence: US)
  Receive Date: 20120823
  Receipt Date: 20131101
  Transmission Date: 20140711
  Serious: No
  Sender: FDA-Public Use
  Company Number: US-009507513-1208USA001221

PATIENT
  Age: 55 Year
  Sex: Female

DRUGS (1)
  1. JANUMET XR [Suspect]
     Indication: DIABETES MELLITUS
     Dosage: 100/1000
     Route: 048
     Dates: start: 201206, end: 201207

REACTIONS (1)
  - Blood glucose increased [Recovered/Resolved]
